FAERS Safety Report 11480698 (Version 2)
Quarter: 2015Q4

REPORT INFORMATION
  Report Type: Spontaneous
  Country: US (occurrence: US)
  Receive Date: 20150909
  Receipt Date: 20151020
  Transmission Date: 20160304
  Serious: Yes (Hospitalization, Disabling)
  Sender: FDA-Public Use
  Company Number: US-JNJFOC-20150903084

PATIENT
  Age: 35 Year
  Sex: Male
  Weight: 85.28 kg

DRUGS (2)
  1. INVEGA SUSTENNA [Suspect]
     Active Substance: PALIPERIDONE PALMITATE
     Indication: SCHIZOPHRENIA, PARANOID TYPE
     Route: 030
     Dates: end: 20150624
  2. ZYPREXA [Concomitant]
     Active Substance: OLANZAPINE
     Indication: PRODUCT USED FOR UNKNOWN INDICATION
     Dosage: BEDTIME
     Route: 065

REACTIONS (8)
  - Abasia [Unknown]
  - Hypoaesthesia [Unknown]
  - Tachycardia [Unknown]
  - Psychotic disorder [Unknown]
  - Anaemia [Unknown]
  - Unresponsive to stimuli [Recovering/Resolving]
  - Muscular weakness [Unknown]
  - Dehydration [Unknown]

NARRATIVE: CASE EVENT DATE: 20150624
